FAERS Safety Report 5309885-8 (Version None)
Quarter: 2007Q2

REPORT INFORMATION
  Report Type: 
  Country: None (occurrence: None)
  Receive Date: 20070427
  Receipt Date: 20070417
  Transmission Date: 20071010
  Serious: Yes (Other)
  Sender: FDA-Public Use
  Company Number: US-ELI_LILLY_AND_COMPANY-US200704003698

PATIENT
  Age: 64 Year
  Sex: Female

DRUGS (13)
  1. ALIMTA [Suspect]
     Indication: NON-SMALL CELL LUNG CANCER STAGE IIIB
     Dates: start: 20070122
  2. CENTRUM SILVER [Concomitant]
     Indication: VITAMIN SUPPLEMENTATION
  3. FERROUS SULFATE [Concomitant]
  4. ZOCOR [Concomitant]
  5. HYDROCHLOROTHIAZIDE [Concomitant]
  6. METFORMIN HCL [Concomitant]
  7. ACTOS [Concomitant]
  8. CALTRATE +D [Concomitant]
  9. FOLIC ACID [Concomitant]
     Indication: VITAMIN SUPPLEMENTATION
  10. VITAMIN B-12 [Concomitant]
     Indication: VITAMIN SUPPLEMENTATION
  11. PREDNISONE TAB [Concomitant]
     Indication: ANAEMIA
     Dosage: 20 MG, 3/D
  12. DEXAMETHASONE [Concomitant]
     Indication: PREMEDICATION
     Route: 048
  13. GLUCOSAMINE W/CHONDROITIN [Concomitant]
     Indication: SUPPLEMENTATION THERAPY

REACTIONS (1)
  - HAEMOLYTIC ANAEMIA [None]
